FAERS Safety Report 8440645-5 (Version None)
Quarter: 2012Q2

REPORT INFORMATION
  Report Type: 
  Country: None (occurrence: None)
  Receive Date: 20120615
  Receipt Date: 20120607
  Transmission Date: 20120825
  Serious: Yes (Other)
  Sender: FDA-Public Use
  Company Number: JP-MERCK-1206USA00386

PATIENT
  Age: 80 Year
  Sex: Male

DRUGS (6)
  1. PEPCID RPD [Suspect]
     Route: 048
     Dates: end: 20120501
  2. COTRIM [Concomitant]
     Route: 048
  3. ITRACONAZOLE [Concomitant]
     Route: 065
  4. ACETAMINOPHEN [Concomitant]
     Route: 048
  5. ANALGESIC (UNSPECIFIED) [Concomitant]
     Route: 048
  6. HORMONES (UNSPECIFIED) [Concomitant]
     Route: 065

REACTIONS (1)
  - MUSCLE SPASMS [None]
